FAERS Safety Report 20766336 (Version 1)
Quarter: 2022Q2

REPORT INFORMATION
  Report Type: Spontaneous
  Country: US (occurrence: US)
  Receive Date: 20220428
  Receipt Date: 20220428
  Transmission Date: 20220721
  Serious: No
  Sender: FDA-Public Use
  Company Number: US-ELI_LILLY_AND_COMPANY-US202204012951

PATIENT
  Age: 64 Year
  Sex: Female

DRUGS (2)
  1. REYVOW [Suspect]
     Active Substance: LASMIDITAN
     Indication: Product used for unknown indication
     Dosage: UNK UNK, UNKNOWN
     Route: 065
  2. DEHYDROEMETINE [Concomitant]
     Active Substance: DEHYDROEMETINE
     Indication: Product used for unknown indication

REACTIONS (1)
  - Tremor [Recovering/Resolving]
